FAERS Safety Report 4842613-9 (Version None)
Quarter: 2005Q4

REPORT INFORMATION
  Report Type: 
  Country: None (occurrence: None)
  Receive Date: 20051201
  Receipt Date: 20051122
  Transmission Date: 20060501
  Serious: Yes (Death, Life-Threatening)
  Sender: FDA-Public Use
  Company Number: FR-GLAXOSMITHKLINE-B0401630A

PATIENT
  Age: 30 Year
  Sex: Female
  Weight: 80 kg

DRUGS (4)
  1. AUGMENTIN [Suspect]
     Dosage: 1G THREE TIMES PER DAY
     Route: 048
     Dates: start: 20050124, end: 20050207
  2. XANAX [Suspect]
     Dosage: .25MG PER DAY
     Route: 048
     Dates: start: 20050124
  3. EXOMUC [Suspect]
     Dosage: 3SAC PER DAY
     Route: 048
     Dates: start: 20050124, end: 20050207
  4. STUDY DRUG [Suspect]
     Indication: BONE NEOPLASM MALIGNANT
     Dosage: 2.5MG PER DAY
     Route: 042
     Dates: start: 20050125, end: 20050125

REACTIONS (8)
  - ALANINE AMINOTRANSFERASE INCREASED [None]
  - ANAEMIA [None]
  - ASPARTATE AMINOTRANSFERASE INCREASED [None]
  - BLOOD ALKALINE PHOSPHATASE INCREASED [None]
  - BLOOD CREATININE INCREASED [None]
  - FEBRILE NEUTROPENIA [None]
  - NEPHROPATHY TOXIC [None]
  - THROMBOCYTOPENIA [None]
